FAERS Safety Report 15490686 (Version 2)
Quarter: 2018Q4

REPORT INFORMATION
  Report Type: Spontaneous
  Country: FR (occurrence: FR)
  Receive Date: 20181011
  Receipt Date: 20181130
  Transmission Date: 20190205
  Serious: Yes (Other)
  Sender: FDA-Public Use
  Company Number: FR-ALLERGAN-1848736US

PATIENT
  Age: 68 Year
  Sex: Male

DRUGS (1)
  1. OZURDEX [Suspect]
     Active Substance: DEXAMETHASONE
     Indication: CYSTOID MACULAR OEDEMA
     Dosage: 0.7 MG, SINGLE
     Route: 031
     Dates: start: 20180912, end: 20180912

REACTIONS (3)
  - Device dislocation [Unknown]
  - Corneal lesion [Unknown]
  - Off label use [Unknown]

NARRATIVE: CASE EVENT DATE: 201809
